FAERS Safety Report 6682294-5 (Version None)
Quarter: 2010Q2

REPORT INFORMATION
  Report Type: 
  Country: None (occurrence: None)
  Receive Date: 20100415
  Receipt Date: 20100407
  Transmission Date: 20101027
  Serious: Yes (Other)
  Sender: FDA-Public Use
  Company Number: DE-BRACCO-000582

PATIENT
  Age: 69 Year
  Sex: Female

DRUGS (1)
  1. SOLUTRAST [Suspect]
     Indication: SPINAL MYELOGRAM
     Dosage: 14-15ML
     Route: 037
     Dates: start: 20100326, end: 20100326

REACTIONS (2)
  - HEARING IMPAIRED [None]
  - TINNITUS [None]
